FAERS Safety Report 5493383-5 (Version None)
Quarter: 2007Q4

REPORT INFORMATION
  Report Type: 
  Country: None (occurrence: None)
  Receive Date: 20071023
  Receipt Date: 20071012
  Transmission Date: 20080405
  Serious: Yes (Other)
  Sender: FDA-Public Use
  Company Number: CH-ROCHE-525158

PATIENT
  Age: 75 Year
  Sex: Female

DRUGS (2)
  1. BONIVA [Suspect]
     Indication: OSTEOPOROSIS
     Dosage: PATIENT RECEIVED THERAPY FOR SEVERAL YEARS.
     Route: 065
  2. CORTISONE ACETATE TAB [Suspect]
     Indication: DRUG USE FOR UNKNOWN INDICATION
     Dosage: PATIENT RECEIVED THERAPY FOR SEVERAL YEARS.
     Route: 048

REACTIONS (1)
  - OSTEONECROSIS [None]
